FAERS Safety Report 7215608-8 (Version None)
Quarter: 2011Q1

REPORT INFORMATION
  Report Type: 
  Country: None (occurrence: None)
  Receive Date: 20110105
  Receipt Date: 20110105
  Transmission Date: 20110831
  Serious: Yes (Other)
  Sender: FDA-Public Use
  Company Number: None

PATIENT
  Age: 63 Year
  Sex: Female
  Weight: 81.6475 kg

DRUGS (1)
  1. CREST PRO HEALTH TOOTHPASTE FOR CLINICAL GUM PROTECTION PROCTOR AND GA [Suspect]
     Indication: TOOTH DISCOLOURATION
     Dosage: ONE INCH STRIP OF TOOTHPASTE TWICE DAILY
     Dates: start: 20101110, end: 20101230

REACTIONS (1)
  - TOOTH DISCOLOURATION [None]
